FAERS Safety Report 4485910-1 (Version None)
Quarter: 2004Q4

REPORT INFORMATION
  Report Type: 
  Country: None (occurrence: None)
  Receive Date: 20041022
  Receipt Date: 20041012
  Transmission Date: 20050328
  Serious: Yes (Other)
  Sender: FDA-Public Use
  Company Number: 163-20785-04100332

PATIENT
  Age: 73 Year
  Sex: Male

DRUGS (4)
  1. THALOMID [Suspect]
     Indication: PROSTATE CANCER
     Dosage: 200 MG, DAILY, ORAL
     Route: 048
     Dates: start: 20041001
  2. TAXOTERE [Concomitant]
  3. PAIN PILLS (ANALGESICS) [Concomitant]
  4. SLEEPING PILLS [Concomitant]

REACTIONS (2)
  - BLINDNESS [None]
  - HYPOAESTHESIA [None]
